FAERS Safety Report 25405975 (Version 1)
Quarter: 2025Q2

REPORT INFORMATION
  Report Type: Spontaneous
  Country: US (occurrence: US)
  Receive Date: 20250606
  Receipt Date: 20250606
  Transmission Date: 20250716
  Serious: Yes (Hospitalization, Other)
  Sender: NOVITIUM PHARMA
  Company Number: US-NOVITIUMPHARMA-2025USNVP01295

PATIENT
  Age: 2 Year
  Sex: Male

DRUGS (3)
  1. DEXAMETHASONE [Suspect]
     Active Substance: DEXAMETHASONE
     Indication: Haemophagocytic lymphohistiocytosis
  2. FLUDARABINE [Concomitant]
     Active Substance: FLUDARABINE PHOSPHATE
     Indication: Haemophagocytic lymphohistiocytosis
  3. TREOSULFAN [Concomitant]
     Active Substance: TREOSULFAN
     Indication: Haemophagocytic lymphohistiocytosis

REACTIONS (4)
  - Growth retardation [Unknown]
  - Steroid dependence [Unknown]
  - Cataract [Unknown]
  - Osteoporosis [Unknown]
